FAERS Safety Report 8133435-4 (Version None)
Quarter: 2012Q1

REPORT INFORMATION
  Report Type: 
  Country: None (occurrence: None)
  Receive Date: 20120213
  Receipt Date: 20120130
  Transmission Date: 20120608
  Serious: Yes (Other)
  Sender: FDA-Public Use
  Company Number: US-PURDUE-DEU-2012-0008586

PATIENT
  Age: 44 Year
  Sex: Male

DRUGS (2)
  1. MORPHINE SULFATE [Suspect]
     Indication: COMPLEX REGIONAL PAIN SYNDROME
     Dosage: 1.493 MG, DAILY
     Route: 037
  2. MORPHINE SULFATE [Suspect]
     Dosage: 1.792 MG, DAILY
     Route: 037

REACTIONS (1)
  - HICCUPS [None]
